FAERS Safety Report 5273252-6 (Version None)
Quarter: 2007Q1

REPORT INFORMATION
  Report Type: 
  Country: None (occurrence: None)
  Receive Date: 20070319
  Receipt Date: 20070307
  Transmission Date: 20070707
  Serious: Yes (Death, Hospitalization, Other)
  Sender: FDA-Public Use
  Company Number: 232612

PATIENT
  Age: 67 Year
  Sex: Male

DRUGS (10)
  1. AVASTIN [Suspect]
     Indication: NEOPLASM MALIGNANT
     Dosage: SEE IMAGE
     Route: 042
     Dates: start: 20060331
  2. AVASTIN [Suspect]
     Indication: NEOPLASM MALIGNANT
     Dosage: SEE IMAGE
     Route: 042
     Dates: start: 20060605
  3. AVASTIN [Suspect]
     Indication: NEOPLASM MALIGNANT
     Dosage: SEE IMAGE
     Route: 042
     Dates: start: 20060703
  4. AVASTIN [Suspect]
     Indication: NEOPLASM MALIGNANT
     Dosage: SEE IMAGE
     Route: 042
     Dates: start: 20060808
  5. FLUOROURACIL [Concomitant]
  6. OXALIPLATIN [Concomitant]
  7. LEUCOVORIN (LEUOCOVORIN CALCIUM) [Concomitant]
  8. IRINOTECAN HCL [Concomitant]
  9. ERBITUX [Concomitant]
  10. PROCRIT [Concomitant]

REACTIONS (6)
  - CARDIAC ARREST [None]
  - COLON CANCER METASTATIC [None]
  - DUODENAL ULCER PERFORATION [None]
  - MULTI-ORGAN FAILURE [None]
  - RESPIRATORY FAILURE [None]
  - SEPTIC SHOCK [None]
